FAERS Safety Report 10240262 (Version 1)
Quarter: 2014Q2

REPORT INFORMATION
  Report Type: Report from Study
  Country: BR (occurrence: BR)
  Receive Date: 20140617
  Receipt Date: 20140617
  Transmission Date: 20141212
  Serious: Yes (Hospitalization, Other)
  Sender: FDA-Public Use
  Company Number: PHHY2014BR074201

PATIENT
  Sex: Male

DRUGS (6)
  1. DIOVAN [Suspect]
     Indication: HYPERTENSION
     Dosage: 320 MG, DAILY
     Route: 048
     Dates: start: 201403
  2. CARBAMAZEPINE [Concomitant]
     Dosage: UNK UKN, UNK
  3. DIUPRESS [Concomitant]
     Dosage: UNK UKN, UNK
  4. METFORMIN [Concomitant]
     Indication: DIABETES MELLITUS
     Dosage: UNK UKN, UNK
  5. RISPERIDONE [Concomitant]
     Dosage: UNK UKN, UNK
  6. DIAZEPAM [Concomitant]
     Dosage: 2 DF, AT NIGHT

REACTIONS (1)
  - Mental disorder [Unknown]
